FAERS Safety Report 15694586 (Version 1)
Quarter: 2018Q4

REPORT INFORMATION
  Report Type: Spontaneous
  Country: US (occurrence: US)
  Receive Date: 20181206
  Receipt Date: 20181206
  Transmission Date: 20190205
  Serious: No
  Sender: FDA-Public Use
  Company Number: US-ENDO PHARMACEUTICALS INC-2018-039740

PATIENT
  Age: 59 Year
  Sex: Male
  Weight: 84.81 kg

DRUGS (2)
  1. XIAFLEX [Suspect]
     Active Substance: COLLAGENASE CLOSTRIDIUM HISTOLYTICUM
     Dosage: 0.58 MG, INJECTION 2
     Route: 026
     Dates: start: 20180517
  2. XIAFLEX [Suspect]
     Active Substance: COLLAGENASE CLOSTRIDIUM HISTOLYTICUM
     Indication: PEYRONIE^S DISEASE
     Dosage: 0.58 MG, INJECTION 1
     Route: 026
     Dates: start: 20180511

REACTIONS (3)
  - Inappropriate schedule of product administration [Recovered/Resolved]
  - Penile contusion [Recovered/Resolved]
  - Penile swelling [Recovered/Resolved]

NARRATIVE: CASE EVENT DATE: 201805
